FAERS Safety Report 24415552 (Version 1)
Quarter: 2024Q4

REPORT INFORMATION
  Report Type: Spontaneous
  Country: GB (occurrence: GB)
  Receive Date: 20241009
  Receipt Date: 20241009
  Transmission Date: 20250114
  Serious: Yes (Other)
  Sender: AUROBINDO
  Company Number: GB-MHRA-EMIS-6856-36a067db-d524-4e7e-8c51-77612e1b6a7d

PATIENT
  Age: 42 Year
  Sex: Female
  Weight: 84 kg

DRUGS (2)
  1. EZETIMIBE [Suspect]
     Active Substance: EZETIMIBE
     Indication: Product used for unknown indication
     Dosage: 1 DOSAGE FORM, DAILY (ONE TO BE TAKEN EACH DAY)
     Route: 065
     Dates: start: 20230829, end: 20240927
  2. ROSUVASTATIN [Concomitant]
     Active Substance: ROSUVASTATIN
     Indication: Product used for unknown indication
     Dosage: 40 MILLIGRAM, ONCE A DAY (40MG OD)
     Route: 065

REACTIONS (1)
  - Gastritis [Unknown]
